FAERS Safety Report 5632350-5 (Version None)
Quarter: 2008Q1

REPORT INFORMATION
  Report Type: 
  Country: None (occurrence: None)
  Receive Date: 20080220
  Receipt Date: 20080208
  Transmission Date: 20080703
  Serious: Yes (Hospitalization)
  Sender: FDA-Public Use
  Company Number: DE-ELI_LILLY_AND_COMPANY-DE200802001983

PATIENT
  Age: 23 Year
  Sex: Female
  Weight: 93 kg

DRUGS (15)
  1. CYMBALTA [Suspect]
     Indication: BIPOLAR I DISORDER
     Dosage: 120 MG, DAILY (1/D)
     Route: 048
     Dates: start: 20070901, end: 20071228
  2. CYMBALTA [Suspect]
     Dosage: 90 MG, DAILY (1/D)
     Dates: start: 20071229
  3. CYMBALTA [Suspect]
     Dosage: 60 MG, DAILY (1/D)
     Dates: start: 20071230
  4. CYMBALTA [Suspect]
     Dosage: 30 MG, DAILY (1/D)
     Dates: start: 20071231, end: 20080103
  5. SEROQUEL [Concomitant]
     Dosage: 50 MG, DAILY (1/D)
     Route: 048
     Dates: start: 20071214, end: 20071220
  6. SEROQUEL [Concomitant]
     Dosage: 75 MG, DAILY (1/D)
     Route: 048
     Dates: start: 20071221, end: 20071229
  7. SEROQUEL [Concomitant]
     Dosage: 75 MG, DAILY (1/D)
     Dates: start: 20080103, end: 20080106
  8. SEROQUEL [Concomitant]
     Dosage: 150 MG, DAILY (1/D)
     Dates: start: 20080107
  9. QUILONUM [Concomitant]
     Dosage: 1125 MG, DAILY (1/D)
     Route: 048
     Dates: start: 20071101, end: 20080103
  10. MIRTAZAPINE [Concomitant]
     Dosage: 15 MG, DAILY (1/D)
     Route: 048
     Dates: start: 20071214, end: 20071216
  11. MIRTAZAPINE [Concomitant]
     Dosage: 30 MG, DAILY (1/D)
     Route: 048
     Dates: start: 20071217, end: 20071220
  12. MIRTAZAPINE [Concomitant]
     Dosage: 15 MG, DAILY (1/D)
     Dates: start: 20071221, end: 20071228
  13. TAVOR [Concomitant]
     Dosage: 1.5 MG, DAILY (1/D)
     Route: 048
     Dates: start: 20071214, end: 20071217
  14. TAVOR [Concomitant]
     Dosage: 1 MG, DAILY (1/D)
     Route: 048
     Dates: start: 20071218, end: 20071221
  15. TAVOR [Concomitant]
     Dosage: 0.5 MG, DAILY (1/D)
     Dates: start: 20071222, end: 20071227

REACTIONS (3)
  - BIPOLAR DISORDER [None]
  - BLOOD CHOLESTEROL INCREASED [None]
  - WEIGHT INCREASED [None]
